FAERS Safety Report 4394833-8 (Version None)
Quarter: 2004Q3

REPORT INFORMATION
  Report Type: 
  Country: None (occurrence: None)
  Receive Date: 20040707
  Receipt Date: 20040625
  Transmission Date: 20050211
  Serious: No
  Sender: FDA-Public Use
  Company Number: 2004CG01236

PATIENT
  Age: 73 Year
  Sex: Female

DRUGS (2)
  1. ARIMIDEX [Suspect]
     Indication: BREAST CANCER
     Dosage: 1 MG QD PO
     Route: 048
     Dates: start: 20040427, end: 20040618
  2. PLAVIX [Concomitant]

REACTIONS (3)
  - CONJUNCTIVITIS [None]
  - CYTOLYTIC HEPATITIS [None]
  - TOXIC SKIN ERUPTION [None]
